FAERS Safety Report 8052078-4 (Version None)
Quarter: 2012Q1

REPORT INFORMATION
  Report Type: 
  Country: None (occurrence: None)
  Receive Date: 20120118
  Receipt Date: 20120112
  Transmission Date: 20120608
  Serious: No
  Sender: FDA-Public Use
  Company Number: US-PFIZER INC-2012009932

PATIENT
  Sex: Female
  Weight: 61.2 kg

DRUGS (3)
  1. CYMBALTA [Concomitant]
     Dosage: UNK
  2. LYRICA [Suspect]
     Indication: MYALGIA
     Dosage: 300 MG, 2X/DAY
     Route: 048
  3. LYRICA [Suspect]
     Dosage: 300 MG, 2X/DAY
     Route: 048
     Dates: start: 20110601

REACTIONS (1)
  - WEIGHT INCREASED [None]
